FAERS Safety Report 7681505-7 (Version None)
Quarter: 2011Q3

REPORT INFORMATION
  Report Type: 
  Country: None (occurrence: None)
  Receive Date: 20110812
  Receipt Date: 20110805
  Transmission Date: 20111222
  Serious: Yes (Death, Other)
  Sender: FDA-Public Use
  Company Number: PHHY2011CA71262

PATIENT
  Sex: Male
  Weight: 0.454 kg

DRUGS (2)
  1. ESTRADIOL [Suspect]
     Dosage: UNK UKN, UNK
     Route: 064
  2. PROGESTERONE [Concomitant]
     Dosage: UNK UKN, UNK
     Route: 064

REACTIONS (4)
  - SMALL FOR DATES BABY [None]
  - SEPTIC SHOCK [None]
  - PREMATURE BABY [None]
  - METABOLIC ACIDOSIS [None]
